FAERS Safety Report 7454096-3 (Version None)
Quarter: 2011Q2

REPORT INFORMATION
  Report Type: 
  Country: None (occurrence: None)
  Receive Date: 20110503
  Receipt Date: 20110419
  Transmission Date: 20111010
  Serious: Yes (Death, Hospitalization)
  Sender: FDA-Public Use
  Company Number: 2007BI007305

PATIENT
  Age: 76 Year
  Sex: Female

DRUGS (8)
  1. TYSABRI [Suspect]
     Indication: MULTIPLE SCLEROSIS
     Route: 042
     Dates: start: 20061024, end: 20070130
  2. LASIX [Concomitant]
     Indication: PRODUCT USED FOR UNKNOWN INDICATION
     Route: 048
  3. NORCO [Concomitant]
     Indication: PAIN
  4. REGLAN [Concomitant]
     Indication: PRODUCT USED FOR UNKNOWN INDICATION
     Route: 048
  5. MILK OF MAGNESIA TAB [Concomitant]
     Indication: CONSTIPATION
  6. PROTONIX [Concomitant]
     Indication: PRODUCT USED FOR UNKNOWN INDICATION
     Route: 048
  7. PREVACID [Concomitant]
     Indication: PRODUCT USED FOR UNKNOWN INDICATION
     Route: 048
  8. TRILEPTAL [Concomitant]
     Indication: NEURALGIA
     Route: 054

REACTIONS (23)
  - CARDIAC AUTONOMIC NEUROPATHY [None]
  - APHASIA [None]
  - DIARRHOEA [None]
  - MULTIPLE SCLEROSIS [None]
  - CARDIAC FAILURE [None]
  - UROSEPSIS [None]
  - URINARY TRACT INFECTION [None]
  - THROMBOCYTOPENIA [None]
  - MALNUTRITION [None]
  - PNEUMONIA [None]
  - ANAEMIA [None]
  - PULMONARY OEDEMA [None]
  - DELIRIUM [None]
  - ELECTROLYTE IMBALANCE [None]
  - CARDIAC FAILURE CONGESTIVE [None]
  - FLUID OVERLOAD [None]
  - TRANSAMINASES INCREASED [None]
  - HYPOVENTILATION [None]
  - MELAENA [None]
  - PNEUMONIA ASPIRATION [None]
  - SEPSIS [None]
  - PLEURAL EFFUSION [None]
  - SICK SINUS SYNDROME [None]
